FAERS Safety Report 5818970-3 (Version None)
Quarter: 2008Q3

REPORT INFORMATION
  Report Type: 
  Country: None (occurrence: None)
  Receive Date: 20080723
  Receipt Date: 20080704
  Transmission Date: 20090109
  Serious: Yes (Death)
  Sender: FDA-Public Use
  Company Number: FR-AVENTIS-200812560FR

PATIENT
  Age: 88 Year
  Sex: Male

DRUGS (6)
  1. LASIX [Suspect]
     Route: 048
  2. INIPOMP                            /01263201/ [Suspect]
     Indication: DRUG USE FOR UNKNOWN INDICATION
     Route: 048
  3. CIFLOX                             /00697201/ [Suspect]
     Indication: DIABETIC FOOT
     Route: 048
     Dates: start: 20080206, end: 20080304
  4. FORTUM                             /00559702/ [Suspect]
     Indication: DIABETIC FOOT
     Route: 048
     Dates: start: 20080206, end: 20080304
  5. DIAMICRON [Suspect]
     Route: 048
     Dates: end: 20080305
  6. DISCOTRINE [Suspect]
     Indication: ANGINA PECTORIS
     Route: 003

REACTIONS (5)
  - HAEMORRHAGE [None]
  - HEPATITIS CHOLESTATIC [None]
  - HEPATITIS FULMINANT [None]
  - RENAL FAILURE ACUTE [None]
  - VITAMIN K DEFICIENCY [None]
